FAERS Safety Report 7879428-3 (Version None)
Quarter: 2011Q4

REPORT INFORMATION
  Report Type: 
  Country: None (occurrence: None)
  Receive Date: 20111101
  Receipt Date: 20111031
  Transmission Date: 20120403
  Serious: Yes (Other)
  Sender: FDA-Public Use
  Company Number: JP-TEVA-306116ISR

PATIENT
  Sex: Female

DRUGS (2)
  1. S-1 (TEGAFUR, GIMERACIL, OTERACIL POTASSIUM) [Suspect]
     Indication: CERVIX CARCINOMA
     Dosage: 60 MG/M2; DAY 1-14, EVERY 4 WEEKS
  2. CISPLATIN [Suspect]
     Indication: CERVIX CARCINOMA

REACTIONS (1)
  - VENOUS THROMBOSIS [None]
